FAERS Safety Report 8894146 (Version 1)
Quarter: 2012Q4

REPORT INFORMATION
  Report Type: 
  Country: US (occurrence: US)
  Receive Date: 20121107
  Receipt Date: 20121107
  Transmission Date: 20130627
  Serious: No
  Sender: FDA-Public Use
  Company Number: US-AMGEN-USASP2011059992

PATIENT
  Sex: Male

DRUGS (1)
  1. ENBREL [Suspect]
     Indication: PSORIATIC ARTHROPATHY
     Dosage: UNK
     Dates: start: 20080501

REACTIONS (7)
  - Malaise [Unknown]
  - Flank pain [Unknown]
  - Gastrointestinal disorder [Unknown]
  - Back pain [Unknown]
  - Neuralgia [Unknown]
  - Inflammation [Unknown]
  - Intervertebral disc protrusion [Not Recovered/Not Resolved]
